FAERS Safety Report 4313313-9 (Version None)
Quarter: 2004Q1

REPORT INFORMATION
  Report Type: 
  Country: None (occurrence: None)
  Receive Date: 20040304
  Receipt Date: 20030618
  Transmission Date: 20041129
  Serious: Yes (Hospitalization, Other)
  Sender: FDA-Public Use
  Company Number: 2003IC000258

PATIENT
  Age: 70 Year
  Sex: Female

DRUGS (8)
  1. 5-FLUOROURACIL (FLUOROURACIL) [Suspect]
     Indication: RECTAL CANCER
     Dosage: 900 MG; INTRAVENOUS
     Route: 042
     Dates: start: 20020207, end: 20020307
  2. ISOVORIN [Suspect]
     Indication: RECTAL CANCER
     Dosage: 375 MG; INTRAVENOUS DRIP
     Route: 041
     Dates: start: 20020207, end: 20020307
  3. SELBEX [Concomitant]
  4. BIOFERMIN [Concomitant]
  5. ADALAT [Concomitant]
  6. LIPITOR [Concomitant]
  7. KYTRIL [Concomitant]
  8. DECADRON [Concomitant]

REACTIONS (4)
  - BONE MARROW DEPRESSION [None]
  - DIARRHOEA [None]
  - PIGMENTATION DISORDER [None]
  - SWELLING FACE [None]
